FAERS Safety Report 7167345-6 (Version None)
Quarter: 2010Q4

REPORT INFORMATION
  Report Type: 
  Country: None (occurrence: None)
  Receive Date: 20101216
  Receipt Date: 20101213
  Transmission Date: 20110411
  Serious: Yes (Other)
  Sender: FDA-Public Use
  Company Number: IT-BRISTOL-MYERS SQUIBB COMPANY-15390362

PATIENT
  Age: 67 Year
  Sex: Female

DRUGS (11)
  1. ORENCIA [Suspect]
     Indication: RHEUMATOID ARTHRITIS
     Route: 042
     Dates: start: 20101012
  2. LANSOPRAZOLE [Suspect]
     Dates: start: 20060101, end: 20101110
  3. DELTACORTENE [Suspect]
     Dates: start: 20060101, end: 20101110
  4. PERINDOPRIL ERBUMINE [Suspect]
     Dates: start: 20060101, end: 20101110
  5. LASIX [Suspect]
     Dates: start: 20060101, end: 20101110
  6. LACIDIPINE [Suspect]
     Dosage: LADIP
     Dates: start: 20060101, end: 20101110
  7. CARDIOASPIRIN [Suspect]
     Dates: start: 20080101, end: 20101110
  8. SIMVASTATIN [Suspect]
     Dosage: MEDIPO
     Dates: start: 20080101, end: 20101110
  9. AMIODAR [Suspect]
  10. DEURSIL [Concomitant]
     Dates: start: 20090601, end: 20101110
  11. CACIT D3 [Concomitant]
     Dates: start: 20060101, end: 20101110

REACTIONS (1)
  - TRANSAMINASES INCREASED [None]
